FAERS Safety Report 6127946-0 (Version None)
Quarter: 2009Q1

REPORT INFORMATION
  Report Type: 
  Country: None (occurrence: None)
  Receive Date: 20090320
  Receipt Date: 20090320
  Transmission Date: 20090719
  Serious: Yes (Disabling)
  Sender: FDA-Public Use
  Company Number: None

PATIENT
  Sex: Female
  Weight: 65.7716 kg

DRUGS (2)
  1. LEVAQUIN [Suspect]
     Indication: PNEUMONIA
     Dosage: 250MG 1/DAY ORAL
     Route: 048
     Dates: start: 20080215
  2. ZOLOFT [Concomitant]

REACTIONS (3)
  - ANOSMIA [None]
  - HYPOGEUSIA [None]
  - RASH GENERALISED [None]
